FAERS Safety Report 5506376-6 (Version None)
Quarter: 2007Q4

REPORT INFORMATION
  Report Type: 
  Country: None (occurrence: None)
  Receive Date: 20071101
  Receipt Date: 20071015
  Transmission Date: 20080405
  Serious: Yes (Death)
  Sender: FDA-Public Use
  Company Number: 2007US002553

PATIENT
  Age: 60 Year
  Sex: Male

DRUGS (1)
  1. PROGRAF [Suspect]
     Indication: DERMATITIS
     Dosage: BID, TOPICAL
     Route: 061
     Dates: start: 20040401

REACTIONS (1)
  - T-CELL LYMPHOMA [None]
